FAERS Safety Report 13799882 (Version 1)
Quarter: 2017Q3

REPORT INFORMATION
  Report Type: Spontaneous
  Country: US (occurrence: US)
  Receive Date: 20170727
  Receipt Date: 20170727
  Transmission Date: 20171127
  Serious: Yes (Hospitalization)
  Sender: FDA-Public Use
  Company Number: None

PATIENT
  Age: 82 Year
  Sex: Male
  Weight: 71 kg

DRUGS (1)
  1. SAXAGLIPTIN [Suspect]
     Active Substance: SAXAGLIPTIN
     Indication: TYPE 2 DIABETES MELLITUS
     Route: 048
     Dates: end: 20170727

REACTIONS (2)
  - Condition aggravated [None]
  - Cardiac failure [None]

NARRATIVE: CASE EVENT DATE: 20170724
